FAERS Safety Report 10354889 (Version 3)
Quarter: 2015Q3

REPORT INFORMATION
  Report Type: Spontaneous
  Country: US (occurrence: US)
  Receive Date: 20140731
  Receipt Date: 20150717
  Transmission Date: 20151125
  Serious: Yes (Death, Hospitalization, Other)
  Sender: FDA-Public Use
  Company Number: US-GLAXOSMITHKLINE-A1082668A

PATIENT
  Age: 46 Year
  Sex: Female
  Weight: 82 kg

DRUGS (12)
  1. MEKINIST [Suspect]
     Active Substance: TRAMETINIB DIMETHYL SULFOXIDE
     Indication: METASTATIC MALIGNANT MELANOMA
     Dosage: 2 MG, QD
     Route: 048
     Dates: start: 2013
  2. PREDNISONE. [Concomitant]
     Active Substance: PREDNISONE
  3. MEKINIST [Suspect]
     Active Substance: TRAMETINIB DIMETHYL SULFOXIDE
     Indication: ARTHROPATHY
     Dosage: 2 MG, QD
     Route: 048
     Dates: start: 20131123
  4. LORAZEPAM. [Concomitant]
     Active Substance: LORAZEPAM
  5. VANCOMYCIN [Concomitant]
     Active Substance: VANCOMYCIN
  6. OMEPRAZOLE. [Concomitant]
     Active Substance: OMEPRAZOLE
  7. SAVELLA [Concomitant]
     Active Substance: MILNACIPRAN HYDROCHLORIDE
  8. TAFINLAR [Suspect]
     Active Substance: DABRAFENIB MESYLATE
     Indication: METASTATIC MALIGNANT MELANOMA
     Dosage: 75 MG
     Route: 048
     Dates: start: 2013, end: 20131206
  9. LUNESTA [Concomitant]
     Active Substance: ESZOPICLONE
  10. METOPROLOL [Concomitant]
     Active Substance: METOPROLOL
  11. IMODIUM [Concomitant]
     Active Substance: LOPERAMIDE HYDROCHLORIDE
  12. PENTASA [Concomitant]
     Active Substance: MESALAMINE

REACTIONS (5)
  - Death [Fatal]
  - Incorrect product storage [Unknown]
  - Clostridium difficile infection [Recovering/Resolving]
  - Body temperature increased [Unknown]
  - Nausea [Not Recovered/Not Resolved]

NARRATIVE: CASE EVENT DATE: 201407
